FAERS Safety Report 9135499 (Version 1)
Quarter: 2013Q1

REPORT INFORMATION
  Report Type: Spontaneous
  Country: US (occurrence: US)
  Receive Date: 20130219
  Receipt Date: 20130219
  Transmission Date: 20140127
  Serious: No
  Sender: FDA-Public Use
  Company Number: US-BRISTOL-MYERS SQUIBB COMPANY-16463176

PATIENT
  Age: 51 Year
  Sex: Female
  Weight: 47 kg

DRUGS (5)
  1. ABATACEPT SUBQ INJECTION 125MG/ML [Suspect]
     Indication: RHEUMATOID ARTHRITIS
     Dosage: STRTED WITH ORENCIA IV A YEAR,RX#1510085-00430?IV-750MG?SC-125MG?LASTINF:01MAR12?NO OF INF:11
     Route: 058
  2. PERCOCET [Concomitant]
  3. MIRALAX [Concomitant]
  4. OMEPRAZOLE [Concomitant]
  5. PREDNISONE [Concomitant]

REACTIONS (9)
  - Pain [Unknown]
  - Joint swelling [Unknown]
  - Flushing [Unknown]
  - Dysarthria [Unknown]
  - Constipation [Unknown]
  - Local swelling [Unknown]
  - Swelling face [Unknown]
  - Arthralgia [Not Recovered/Not Resolved]
  - Abdominal discomfort [Not Recovered/Not Resolved]
